FAERS Safety Report 10176378 (Version 1)
Quarter: 2014Q2

REPORT INFORMATION
  Report Type: Spontaneous
  Country: US (occurrence: None)
  Receive Date: 20140514
  Receipt Date: 20140514
  Transmission Date: 20141212
  Serious: Yes (Hospitalization, Other)
  Sender: FDA-Public Use
  Company Number: TPU2014-00110

PATIENT
  Sex: Male

DRUGS (2)
  1. LIDODERM (LIDOCAINE PATCH 5% (5 PERCENT POULTICE OR PATCH) [Suspect]
     Indication: PRODUCT USED FOR UNKNOWN INDICATION
     Route: 061
  2. OTHER MEDICATION (ALL OTHER THERAPEUTIC PRODUCT) [Suspect]
     Indication: PRODUCT USED FOR UNKNOWN INDICATION

REACTIONS (4)
  - Overdose [None]
  - Convulsion [None]
  - Mental impairment [None]
  - Mental disorder [None]
